FAERS Safety Report 24704202 (Version 2)
Quarter: 2024Q4

REPORT INFORMATION
  Report Type: Spontaneous
  Country: US (occurrence: US)
  Receive Date: 20241206
  Receipt Date: 20241206
  Transmission Date: 20250115
  Serious: Yes (Other)
  Sender: ROCHE
  Company Number: US-ROCHE-10000148825

PATIENT
  Sex: Female

DRUGS (7)
  1. HERCEPTIN [Suspect]
     Active Substance: TRASTUZUMAB
     Indication: Breast cancer female
     Dosage: STRENGTH: 150 MG/VIAL ON DAY 8 AND 15
     Route: 042
     Dates: start: 202410
  2. HERCEPTIN [Suspect]
     Active Substance: TRASTUZUMAB
     Indication: Breast cancer
  3. PACLITAXEL [Concomitant]
     Active Substance: PACLITAXEL
  4. ONDANSETRON [Concomitant]
     Active Substance: ONDANSETRON
     Dosage: 2 ML
  5. FAMOTIDINE [Concomitant]
     Active Substance: FAMOTIDINE
     Dosage: 2 ML/VIAL
  6. DIPHENHYDRAMINE [Concomitant]
     Active Substance: DIPHENHYDRAMINE
     Dosage: 1 ML/VIAL
  7. DEXAMETHASONE [Concomitant]
     Active Substance: DEXAMETHASONE

REACTIONS (2)
  - Fall [Unknown]
  - Cerebral haemorrhage [Unknown]
